FAERS Safety Report 8880420 (Version 1)
Quarter: 2012Q4

REPORT INFORMATION
  Report Type: 
  Country: BR (occurrence: BR)
  Receive Date: 20121101
  Receipt Date: 20121101
  Transmission Date: 20130627
  Serious: Yes (Death, Hospitalization, Other)
  Sender: FDA-Public Use
  Company Number: PHHY2012BR098762

PATIENT
  Sex: Male
  Weight: 60 kg

DRUGS (6)
  1. FORASEQ [Suspect]
     Indication: CHRONIC OBSTRUCTIVE PULMONARY DISEASE
     Dosage: UNK UKN, BID
  2. CAPTOPRIL [Concomitant]
     Indication: HYPERTENSION
     Dosage: UNK UKN, BID
     Route: 048
  3. HYDROCHLOROTHIAZIDE [Concomitant]
     Indication: HYPERTENSION
     Dosage: UNK UKN, QD
     Route: 048
  4. ATROVENT [Concomitant]
     Indication: DYSPNOEA
     Dosage: UNK UKN, UNK
  5. LEXOTAN [Concomitant]
     Indication: SEDATION
     Dosage: UNK UKN, BID
     Route: 048
  6. BAMIFIX [Concomitant]
     Indication: CHRONIC OBSTRUCTIVE PULMONARY DISEASE
     Dosage: UNK UKN, BID

REACTIONS (6)
  - Respiratory failure [Fatal]
  - Cardiac failure [Fatal]
  - Pneumonia [Fatal]
  - Arrhythmia [Fatal]
  - Chronic obstructive pulmonary disease [Fatal]
  - Pyrexia [Unknown]
